FAERS Safety Report 8012760-1 (Version None)
Quarter: 2011Q4

REPORT INFORMATION
  Report Type: 
  Country: None (occurrence: None)
  Receive Date: 20111229
  Receipt Date: 20111219
  Transmission Date: 20120403
  Serious: Yes (Death)
  Sender: FDA-Public Use
  Company Number: US-PFIZER INC-2011309815

PATIENT
  Age: 77 Year
  Sex: Female

DRUGS (7)
  1. NITROGLYCERIN [Suspect]
  2. CARVEDILOL [Suspect]
  3. CITALOPRAM [Suspect]
  4. ALENDRONATE SODIUM [Suspect]
  5. ALPRAZOLAM [Suspect]
  6. OXYBUTYNIN CHLORIDE [Suspect]
  7. ACETYLSALICYLIC ACID SRT [Suspect]

REACTIONS (1)
  - COMPLETED SUICIDE [None]
